FAERS Safety Report 4923695-2 (Version None)
Quarter: 2006Q1

REPORT INFORMATION
  Report Type: 
  Country: None (occurrence: None)
  Receive Date: 20060227
  Receipt Date: 20050217
  Transmission Date: 20060701
  Serious: Yes (Hospitalization)
  Sender: FDA-Public Use
  Company Number: US-MERCK-0502USA02672

PATIENT
  Age: 70 Year
  Sex: Female
  Weight: 60 kg

DRUGS (2)
  1. VIOXX [Suspect]
     Indication: ARTHRITIS
     Route: 048
     Dates: start: 20030924, end: 20041005
  2. TYLENOL (CAPLET) [Concomitant]
     Route: 065

REACTIONS (3)
  - BRADYCARDIA [None]
  - CARDIAC ARREST [None]
  - LUNG DISORDER [None]
